FAERS Safety Report 6868763-3 (Version None)
Quarter: 2010Q3

REPORT INFORMATION
  Report Type: 
  Country: None (occurrence: None)
  Receive Date: 20100721
  Receipt Date: 20100721
  Transmission Date: 20110219
  Serious: Yes (Hospitalization)
  Sender: FDA-Public Use
  Company Number: None

PATIENT
  Sex: Female
  Weight: 108.8633 kg

DRUGS (2)
  1. YASMIN [Suspect]
     Indication: MENSTRUAL CYCLE MANAGEMENT
     Dosage: ONE EVERY DAY PO
     Route: 048
     Dates: start: 20030101, end: 20090101
  2. YASMIN [Suspect]
     Indication: MENSTRUATION IRREGULAR
     Dosage: ONE EVERY DAY PO
     Route: 048
     Dates: start: 20030101, end: 20090101

REACTIONS (4)
  - CHEST PAIN [None]
  - CHOLECYSTITIS [None]
  - DIARRHOEA [None]
  - DYSPEPSIA [None]
